FAERS Safety Report 5815447-6 (Version None)
Quarter: 2008Q3

REPORT INFORMATION
  Report Type: 
  Country: None (occurrence: None)
  Receive Date: 20080718
  Receipt Date: 20080708
  Transmission Date: 20090109
  Serious: Yes (Hospitalization, Other)
  Sender: FDA-Public Use
  Company Number: US-PFIZER INC-2008057103

PATIENT
  Sex: Female

DRUGS (4)
  1. ZOLOFT [Suspect]
  2. PAXIL CR [Suspect]
     Indication: DEPRESSION
     Route: 048
     Dates: start: 20080429, end: 20080606
  3. AMBIEN [Concomitant]
  4. PREMARIN [Concomitant]

REACTIONS (3)
  - INTENTIONAL SELF-INJURY [None]
  - OPEN FRACTURE [None]
  - SUICIDE ATTEMPT [None]
